FAERS Safety Report 24800170 (Version 3)
Quarter: 2025Q1

REPORT INFORMATION
  Report Type: Spontaneous
  Country: FR (occurrence: FR)
  Receive Date: 20250102
  Receipt Date: 20250212
  Transmission Date: 20250408
  Serious: Yes (Hospitalization, Other)
  Sender: IDORSIA PHARMACEUTICALS
  Company Number: None

PATIENT
  Age: 54 Year
  Sex: Male
  Weight: 65.4 kg

DRUGS (2)
  1. QUVIVIQ [Suspect]
     Active Substance: DARIDOREXANT
     Indication: Insomnia
     Route: 048
     Dates: start: 202408, end: 202409
  2. ALPRAZOLAM [Suspect]
     Active Substance: ALPRAZOLAM
     Indication: Anxiety
     Route: 048
     Dates: start: 202408, end: 202409

REACTIONS (5)
  - Suicidal ideation [Unknown]
  - Hepatic cytolysis [Recovered/Resolved]
  - Hepatitis cholestatic [Recovered/Resolved]
  - Jaundice [Recovered/Resolved]
  - Depression [Unknown]

NARRATIVE: CASE EVENT DATE: 20240901
